FAERS Safety Report 25707773 (Version 1)
Quarter: 2025Q3

REPORT INFORMATION
  Report Type: Spontaneous
  Country: GB (occurrence: GB)
  Receive Date: 20250820
  Receipt Date: 20250820
  Transmission Date: 20251020
  Serious: Yes (Other)
  Sender: ELI LILLY AND COMPANY
  Company Number: None

PATIENT

DRUGS (1)
  1. MOUNJARO [Suspect]
     Active Substance: TIRZEPATIDE
     Indication: Product used for unknown indication
     Route: 065
     Dates: start: 20250717, end: 20250811

REACTIONS (4)
  - Chest discomfort [Recovering/Resolving]
  - Heart rate increased [Recovering/Resolving]
  - Pain in extremity [Recovering/Resolving]
  - Flushing [Recovering/Resolving]

NARRATIVE: CASE EVENT DATE: 20250811
